FAERS Safety Report 8939834 (Version 2)
Quarter: 2014Q2

REPORT INFORMATION
  Report Type: Other
  Country: GB (occurrence: GB)
  Receive Date: 20121203
  Receipt Date: 20140523
  Transmission Date: 20141212
  Serious: Yes (Disabling)
  Sender: FDA-Public Use
  Company Number: GB-GLENMARK GENERICS INC.-2012GMK004421

PATIENT
  Age: 14 Year
  Sex: Female
  Weight: 35 kg

DRUGS (2)
  1. TOPIRAMATE [Suspect]
     Indication: EPILEPSY
     Dosage: 115 MG, BID
     Route: 048
     Dates: start: 20040501
  2. EPISENTA [Suspect]
     Indication: EPILEPSY
     Dosage: 500 MG, BID
     Route: 048
     Dates: start: 20040501

REACTIONS (1)
  - Cataract [Unknown]
